FAERS Safety Report 5342951-X (Version None)
Quarter: 2007Q2

REPORT INFORMATION
  Report Type: 
  Country: None (occurrence: None)
  Receive Date: 20070416
  Receipt Date: 20070130
  Transmission Date: 20071010
  Serious: No
  Sender: FDA-Public Use
  Company Number: 2007SP000354

PATIENT
  Age: 78 Year
  Sex: Female
  Weight: 54.8852 kg

DRUGS (6)
  1. LUNESTA [Suspect]
     Indication: INSOMNIA
     Dosage: 2 MG; HS; ORAL
     Route: 048
     Dates: start: 20060101, end: 20060101
  2. TYLENOL [Concomitant]
  3. METOPROLOL SUCCINATE [Concomitant]
  4. SALSALATE [Concomitant]
  5. ATORVASTATIN CALCIUM [Concomitant]
  6. PLAVIX [Concomitant]

REACTIONS (2)
  - INSOMNIA [None]
  - NIGHTMARE [None]
